FAERS Safety Report 24718761 (Version 3)
Quarter: 2024Q4

REPORT INFORMATION
  Report Type: Spontaneous
  Country: US (occurrence: US)
  Receive Date: 20241210
  Receipt Date: 20241230
  Transmission Date: 20250114
  Serious: Yes (Other)
  Sender: PFIZER
  Company Number: US-PFIZER INC-PV202400158605

PATIENT
  Age: 75 Year
  Sex: Female
  Weight: 103.87 kg

DRUGS (6)
  1. PRISTIQ EXTENDED-RELEASE [Suspect]
     Active Substance: DESVENLAFAXINE SUCCINATE
     Indication: Major depression
     Dosage: 100 MG
     Dates: start: 2010
  2. PRISTIQ EXTENDED-RELEASE [Suspect]
     Active Substance: DESVENLAFAXINE SUCCINATE
     Dosage: 100 MG
     Dates: start: 2013
  3. PRISTIQ EXTENDED-RELEASE [Suspect]
     Active Substance: DESVENLAFAXINE SUCCINATE
     Dosage: 50 MG, DAILY
     Route: 048
  4. DIAZEPAM [Concomitant]
     Active Substance: DIAZEPAM
     Indication: Panic attack
     Dosage: 5 MG, AS NEEDED
  5. RITALIN [Concomitant]
     Active Substance: METHYLPHENIDATE HYDROCHLORIDE
     Indication: Depression
     Dosage: 5 MG
  6. SPRAVATO [Concomitant]
     Active Substance: ESKETAMINE
     Indication: Major depression
     Dosage: UNK

REACTIONS (18)
  - Anaphylactic reaction [Unknown]
  - Seizure [Unknown]
  - Deafness [Unknown]
  - Brain injury [Unknown]
  - Withdrawal syndrome [Unknown]
  - Nervousness [Unknown]
  - Electric shock sensation [Unknown]
  - Nausea [Unknown]
  - Illness [Unknown]
  - Pain [Unknown]
  - Orthostatic hypotension [Unknown]
  - Accident [Unknown]
  - Limb discomfort [Unknown]
  - Respiratory disorder [Unknown]
  - Lower limb fracture [Unknown]
  - Upper limb fracture [Unknown]
  - Shoulder fracture [Unknown]
  - Injury [Unknown]

NARRATIVE: CASE EVENT DATE: 20130101
